FAERS Safety Report 24375072 (Version 1)
Quarter: 2024Q3

REPORT INFORMATION
  Report Type: Report from Study
  Country: IT (occurrence: IT)
  Receive Date: 20240927
  Receipt Date: 20240927
  Transmission Date: 20241016
  Serious: Yes (Hospitalization, Other)
  Sender: JOHNSON AND JOHNSON
  Company Number: IT-JNJFOC-20240959523

PATIENT
  Sex: Female
  Weight: 49 kg

DRUGS (28)
  1. SELEXIPAG [Suspect]
     Active Substance: SELEXIPAG
     Indication: Pulmonary arterial hypertension
     Dosage: TOTAL DAILY DOSE: 400
     Route: 048
     Dates: start: 20210317, end: 20210504
  2. SELEXIPAG [Suspect]
     Active Substance: SELEXIPAG
     Dosage: TOTAL DAILY DOSE: 800
     Route: 048
     Dates: start: 20210505, end: 20210517
  3. SELEXIPAG [Suspect]
     Active Substance: SELEXIPAG
     Dosage: TOTAL DAILY DOSE: 1200
     Route: 048
     Dates: start: 20210518, end: 20210829
  4. SELEXIPAG [Suspect]
     Active Substance: SELEXIPAG
     Dosage: TOTAL DAILY DOSE: 1600
     Route: 048
     Dates: start: 20210830, end: 20210920
  5. SELEXIPAG [Suspect]
     Active Substance: SELEXIPAG
     Dosage: TOTAL DAILY DOSE: 2000
     Route: 048
     Dates: start: 20210921, end: 20211130
  6. SELEXIPAG [Suspect]
     Active Substance: SELEXIPAG
     Dosage: TOTAL DAILY DOSE: 2200
     Route: 048
     Dates: start: 20211201, end: 20211214
  7. SELEXIPAG [Suspect]
     Active Substance: SELEXIPAG
     Dosage: TOTAL DAILY DOSE: 2400
     Route: 048
     Dates: start: 20211215, end: 20220105
  8. SELEXIPAG [Suspect]
     Active Substance: SELEXIPAG
     Dosage: TOTAL DAILY DOSE: 2200
     Route: 048
     Dates: start: 20220106, end: 20220620
  9. SELEXIPAG [Suspect]
     Active Substance: SELEXIPAG
     Dosage: TOTAL DAILY DOSE: 1600
     Route: 048
     Dates: start: 20220620, end: 20221231
  10. SELEXIPAG [Suspect]
     Active Substance: SELEXIPAG
     Dosage: TOTAL DAILY DOSE: 1400
     Route: 048
     Dates: start: 20221231
  11. MACITENTAN [Suspect]
     Active Substance: MACITENTAN
     Indication: Pulmonary arterial hypertension
     Route: 048
     Dates: start: 20221120, end: 202310
  12. MACITENTAN [Suspect]
     Active Substance: MACITENTAN
     Route: 048
     Dates: start: 20240120
  13. ADCIRCA [Concomitant]
     Active Substance: TADALAFIL
     Dosage: TOTAL DAILY DOSE: 40
     Route: 048
     Dates: start: 20210303
  14. REVATIO [Concomitant]
     Active Substance: SILDENAFIL CITRATE
     Dosage: TOTAL DAILY DOSE: 60
     Route: 048
     Dates: start: 20201219
  15. REVATIO [Concomitant]
     Active Substance: SILDENAFIL CITRATE
     Dosage: TOTAL DAILY DOSE: 40
     Route: 048
     Dates: start: 20210211, end: 20210217
  16. ARIXTRA [Concomitant]
     Active Substance: FONDAPARINUX SODIUM
     Indication: Venous thrombosis
     Route: 048
     Dates: start: 20240829
  17. MESALAMINE [Concomitant]
     Active Substance: MESALAMINE
     Indication: Diarrhoea
     Route: 048
     Dates: start: 20240910
  18. BUDESONIDE [Concomitant]
     Active Substance: BUDESONIDE
     Indication: Diarrhoea
     Route: 048
     Dates: start: 20240806
  19. CHOLESTYRAMINE [Concomitant]
     Active Substance: CHOLESTYRAMINE
     Indication: Diarrhoea
     Route: 048
     Dates: start: 20240725
  20. ZAROXOLYN [Concomitant]
     Active Substance: METOLAZONE
     Indication: Dyspnoea
     Route: 048
     Dates: start: 20221115
  21. MEDROL [Concomitant]
     Active Substance: METHYLPREDNISOLONE
     Indication: Dyspnoea
     Route: 048
     Dates: start: 20221115
  22. PROGRAF [Concomitant]
     Active Substance: TACROLIMUS
     Indication: Liver transplant
     Route: 048
     Dates: start: 20200818
  23. DEURSIL [Concomitant]
     Active Substance: URSODIOL
     Indication: Cholelithiasis
     Route: 048
     Dates: start: 20210628
  24. ALLOPURINOL [Concomitant]
     Active Substance: ALLOPURINOL
     Indication: Hyperuricaemia
     Route: 048
     Dates: start: 20210517
  25. FUROSEMIDE\SPIRONOLACTONE [Concomitant]
     Active Substance: FUROSEMIDE\SPIRONOLACTONE
     Indication: Pulmonary hypertension
     Route: 048
     Dates: start: 20210303, end: 20210505
  26. LASIX [Concomitant]
     Active Substance: FUROSEMIDE
     Indication: Pulmonary hypertension
     Route: 048
     Dates: start: 20210303
  27. CERTICAN [Concomitant]
     Active Substance: EVEROLIMUS
     Indication: Liver transplant
     Route: 048
     Dates: start: 20200923
  28. LUCEN [ESOMEPRAZOLE SODIUM] [Concomitant]
     Indication: Gastrointestinal disorder therapy
     Route: 048
     Dates: start: 20200708

REACTIONS (4)
  - Diarrhoea [Recovered/Resolved]
  - Abdominal pain [Recovered/Resolved]
  - Ascites [Not Recovered/Not Resolved]
  - Venous thrombosis [Not Recovered/Not Resolved]

NARRATIVE: CASE EVENT DATE: 20240721
